FAERS Safety Report 9031805 (Version 1)
Quarter: 2013Q1

REPORT INFORMATION
  Report Type: Other
  Country: IT (occurrence: IT)
  Receive Date: 20130124
  Receipt Date: 20130124
  Transmission Date: 20140127
  Serious: Yes (Hospitalization)
  Sender: FDA-Public Use
  Company Number: IT-WATSON-2013-00819

PATIENT
  Age: 71 Year
  Sex: Male

DRUGS (1)
  1. ACYCLOVIR (UNKNOWN) [Suspect]
     Indication: HERPES SIMPLEX
     Dosage: 1200 MG, DAILY
     Route: 048
     Dates: start: 20121227, end: 20121230

REACTIONS (1)
  - Abdominal pain upper [Recovering/Resolving]
